FAERS Safety Report 5517411-3 (Version None)
Quarter: 2007Q4

REPORT INFORMATION
  Report Type: 
  Country: None (occurrence: None)
  Receive Date: 20071114
  Receipt Date: 20071108
  Transmission Date: 20080405
  Serious: Yes (Life-Threatening)
  Sender: FDA-Public Use
  Company Number: US-ABBOTT-07P-163-0419610-00

PATIENT
  Sex: Male
  Weight: 90 kg

DRUGS (16)
  1. RITONAVIR SOFT GELATIN CAPSULES [Suspect]
     Indication: HIV INFECTION
     Dosage: ONE DOSE TWICE PER DAY
     Route: 048
     Dates: start: 20060713
  2. TMC114 [Concomitant]
     Indication: HIV INFECTION
     Dosage: TWO DOSES TWICE PER DAY
     Route: 048
     Dates: start: 20060713
  3. TMC125 [Concomitant]
     Indication: HIV INFECTION
     Dosage: TWO DOSES TWICE PER DAY
     Route: 048
     Dates: start: 20060713
  4. ZIDOVUDINE [Concomitant]
     Indication: HIV INFECTION
     Route: 048
     Dates: start: 20060223
  5. LAMIVUDINE [Concomitant]
     Indication: HIV INFECTION
     Route: 048
     Dates: start: 20060126
  6. ENFUVIRTIDE [Concomitant]
     Indication: HIV INFECTION
     Route: 048
     Dates: start: 20060713
  7. BENAZEPRIL HYDROCHLORIDE [Concomitant]
     Indication: HYPERTENSION
     Route: 048
  8. SULTOPRIDE [Concomitant]
     Indication: HYPERTENSION
     Route: 048
  9. ATORVASTATIN CALCIUM [Concomitant]
     Indication: HYPERLIPIDAEMIA
     Route: 048
     Dates: start: 20060803
  10. LOPERAMIDE HCL [Concomitant]
     Indication: DIARRHOEA
     Route: 048
  11. ACYCLOVIR [Concomitant]
     Indication: ANTIVIRAL PROPHYLAXIS
     Route: 048
  12. FLUCONAZOLE [Concomitant]
     Indication: PROPHYLAXIS
     Route: 048
     Dates: start: 20061130
  13. HEPARIN-FRACTION, SODIUM SALT [Concomitant]
     Indication: DEEP VEIN THROMBOSIS
     Route: 058
     Dates: start: 20061213
  14. ALPROSTADIL [Concomitant]
     Indication: HYPOGONADISM
     Route: 030
     Dates: start: 20070115
  15. TESTOSTERONE [Concomitant]
     Indication: HYPOGONADISM
     Route: 030
     Dates: start: 20070710
  16. INTERFERON/PLACEBO [Concomitant]
     Indication: PAPILLOMA VIRAL INFECTION
     Route: 048
     Dates: start: 20070808

REACTIONS (1)
  - ANAL CANCER [None]
